FAERS Safety Report 6844065-6 (Version None)
Quarter: 2010Q3

REPORT INFORMATION
  Report Type: 
  Country: None (occurrence: None)
  Receive Date: 20100715
  Receipt Date: 20100703
  Transmission Date: 20110219
  Serious: Yes (Hospitalization, Disabling, Other)
  Sender: FDA-Public Use
  Company Number: JP-PFIZER INC-2009268165

PATIENT
  Age: 56 Year
  Sex: Male
  Weight: 78 kg

DRUGS (5)
  1. VIAGRA [Suspect]
     Dosage: UNK
     Route: 048
     Dates: start: 20090627
  2. ASPIRIN [Concomitant]
     Indication: ANGINA PECTORIS
     Dosage: UNK
     Route: 048
  3. BLOPRESS [Concomitant]
     Indication: HYPERTENSION
     Dosage: UNK
     Route: 048
  4. ARTIST [Concomitant]
     Indication: HYPERTENSION
     Dosage: UNK
     Route: 048
  5. SIGMART [Concomitant]
     Indication: ANGINA PECTORIS
     Dosage: UNK
     Dates: start: 20100625, end: 20100626

REACTIONS (3)
  - CEREBRAL INFARCTION [None]
  - HEMIPLEGIA [None]
  - HYPERTENSION [None]
